FAERS Safety Report 20643479 (Version 1)
Quarter: 2022Q1

REPORT INFORMATION
  Report Type: Report from Study
  Country: US (occurrence: US)
  Receive Date: 20220328
  Receipt Date: 20220328
  Transmission Date: 20220424
  Serious: No
  Sender: FDA-Public Use
  Company Number: US-NOVARTISTESTPH-NVSC2022US069863

PATIENT
  Age: 22 Year
  Sex: Male

DRUGS (2)
  1. ILARIS [Suspect]
     Active Substance: CANAKINUMAB
     Indication: Still^s disease
     Dosage: 300 MG, QMO
     Route: 058
     Dates: start: 20211119
  2. ILARIS [Suspect]
     Active Substance: CANAKINUMAB
     Dosage: 300 MG, 1 G, (28 D)
     Route: 058
     Dates: start: 20220224, end: 20220224

REACTIONS (3)
  - Abdominal discomfort [Unknown]
  - Jaundice [Unknown]
  - Cough [Unknown]

NARRATIVE: CASE EVENT DATE: 20220313
